FAERS Safety Report 9218978 (Version 1)
Quarter: 2013Q2

REPORT INFORMATION
  Report Type: Spontaneous
  Country: DE (occurrence: DE)
  Receive Date: 20130409
  Receipt Date: 20130409
  Transmission Date: 20140414
  Serious: Yes (Life-Threatening, Hospitalization)
  Sender: FDA-Public Use
  Company Number: DE-PFIZER INC-2013109151

PATIENT
  Sex: Female
  Weight: 90 kg

DRUGS (2)
  1. CELEBREX [Suspect]
     Indication: PAIN
     Dosage: 200 UNK, 2X1
     Route: 048
     Dates: start: 20120203, end: 20120212
  2. TARGIN [Suspect]
     Indication: PAIN
     Dosage: 2X1/PER DAY
     Route: 048
     Dates: start: 20120203

REACTIONS (2)
  - Post procedural haemorrhage [Unknown]
  - Procedural haemorrhage [Unknown]
